FAERS Safety Report 16088917 (Version 1)
Quarter: 2019Q1

REPORT INFORMATION
  Report Type: Spontaneous
  Country: US (occurrence: US)
  Receive Date: 20190319
  Receipt Date: 20190319
  Transmission Date: 20190418
  Serious: Yes (Hospitalization)
  Sender: FDA-Public Use
  Company Number: US-CORCEPT THERAPEUTICS INC.-US-2019CRT000302

PATIENT
  Age: 26 Year
  Sex: Female

DRUGS (1)
  1. MIFEPRISTONE [Suspect]
     Active Substance: MIFEPRISTONE
     Indication: CONTRACEPTION
     Dosage: 10 MG, UNK
     Route: 065

REACTIONS (5)
  - Product use in unapproved indication [Unknown]
  - Tachycardia [Recovered/Resolved]
  - Acute generalised exanthematous pustulosis [Recovered/Resolved]
  - Hypotension [Recovered/Resolved]
  - Abortion induced [Unknown]
